FAERS Safety Report 12587813 (Version 23)
Quarter: 2020Q2

REPORT INFORMATION
  Report Type: Spontaneous
  Country: BR (occurrence: BR)
  Receive Date: 20160725
  Receipt Date: 20200629
  Transmission Date: 20200713
  Serious: Yes (Hospitalization, Other)
  Sender: FDA-Public Use
  Company Number: BR-GLAXOSMITHKLINE-BR2015GSK157867

PATIENT
  Age: 37 Year
  Sex: Female
  Weight: 51 kg

DRUGS (4)
  1. LOTAR (AMLODIPINE BESILATE + LOSARTAN POTASSIUM) [Concomitant]
     Indication: BLOOD PRESSURE INCREASED
     Dosage: UNK
  2. LOSARTAN POTASSIUM. [Concomitant]
     Active Substance: LOSARTAN POTASSIUM
     Indication: BLOOD PRESSURE INCREASED
     Dosage: UNK
  3. BENLYSTA [Suspect]
     Active Substance: BELIMUMAB
     Indication: SYSTEMIC LUPUS ERYTHEMATOSUS
     Dosage: 520 MG, UNK
     Dates: start: 20151028, end: 20191014
  4. CYCLOPHOSPHAMIDE. [Concomitant]
     Active Substance: CYCLOPHOSPHAMIDE
     Indication: RENAL IMPAIRMENT
     Dosage: UNK

REACTIONS (41)
  - Erythema [Recovered/Resolved]
  - Product dose omission [Not Recovered/Not Resolved]
  - Pericardial disease [Recovered/Resolved]
  - Drug hypersensitivity [Recovered/Resolved]
  - Arthropathy [Recovered/Resolved]
  - Rash [Recovered/Resolved]
  - Hypersensitivity [Recovered/Resolved]
  - Rhinitis [Recovered/Resolved]
  - Localised infection [Recovered/Resolved]
  - Haematuria [Not Recovered/Not Resolved]
  - Burning sensation [Recovered/Resolved]
  - Contusion [Unknown]
  - Urticaria [Recovered/Resolved]
  - Sinusitis [Recovered/Resolved]
  - Hypertension [Recovered/Resolved]
  - Cardiac operation [Not Recovered/Not Resolved]
  - Proteinuria [Not Recovered/Not Resolved]
  - Localised oedema [Recovered/Resolved]
  - Infarction [Recovered/Resolved]
  - Frustration tolerance decreased [Recovered/Resolved]
  - Social problem [Recovered/Resolved]
  - Eye ulcer [Recovered/Resolved]
  - Inappropriate schedule of product administration [Unknown]
  - Peripheral swelling [Recovered/Resolved]
  - Thrombosis [Recovered/Resolved]
  - Eye pain [Recovered/Resolved]
  - Decreased activity [Not Recovered/Not Resolved]
  - Phlebectomy [Not Recovered/Not Resolved]
  - Underdose [Unknown]
  - Cerebrovascular accident [Recovered/Resolved]
  - Alopecia [Recovered/Resolved]
  - Pyrexia [Recovered/Resolved]
  - Pain in extremity [Not Recovered/Not Resolved]
  - Cellulitis [Recovered/Resolved]
  - Arthralgia [Not Recovered/Not Resolved]
  - Procedural haemorrhage [Recovered/Resolved]
  - Myalgia [Recovered/Resolved]
  - Purulent discharge [Recovered/Resolved]
  - Haematoma [Not Recovered/Not Resolved]
  - Product availability issue [Unknown]
  - Off label use [Recovered/Resolved]

NARRATIVE: CASE EVENT DATE: 20160620
